FAERS Safety Report 8308648-9 (Version None)
Quarter: 2012Q2

REPORT INFORMATION
  Report Type: 
  Country: None (occurrence: None)
  Receive Date: 20120420
  Receipt Date: 20120412
  Transmission Date: 20120825
  Serious: Yes (Hospitalization, Other)
  Sender: FDA-Public Use
  Company Number: 2012SP019424

PATIENT
  Age: 22 Year
  Sex: Female

DRUGS (1)
  1. NUVARING [Suspect]
     Indication: CONTRACEPTION
     Dosage: ONCE, VAG
     Route: 067
     Dates: start: 20111201, end: 20120102

REACTIONS (5)
  - VOMITING [None]
  - EPILEPSY [None]
  - CEREBRAL VENOUS THROMBOSIS [None]
  - HEADACHE [None]
  - TRANSVERSE SINUS THROMBOSIS [None]
